FAERS Safety Report 6405152-X (Version None)
Quarter: 2009Q4

REPORT INFORMATION
  Report Type: 
  Country: None (occurrence: None)
  Receive Date: 20091019
  Receipt Date: 20090930
  Transmission Date: 20100525
  Serious: Yes (Other)
  Sender: FDA-Public Use
  Company Number: GR-TEVA-212049ISR

PATIENT
  Sex: Female

DRUGS (10)
  1. COPAXONE [Suspect]
     Indication: MULTIPLE SCLEROSIS
     Route: 058
     Dates: start: 20090501
  2. CITALOPRAM HYDROCHLORIDE [Concomitant]
  3. LANSOPRAZOLE [Concomitant]
     Dosage: 30X2 DAILY
  4. METOPROLOL TARTRATE [Concomitant]
     Indication: HYPERTENSION
  5. ALFUZOSIN HYDROCHLORIDE [Concomitant]
  6. THYRO 4(LEVOTHYROXINE) [Concomitant]
  7. FOLIC ACID [Concomitant]
     Indication: ANAEMIA
  8. MESALAMINE [Concomitant]
     Indication: COLITIS
     Dates: start: 20090919
  9. FLAGYL [Concomitant]
     Dosage: 500MGX2
     Dates: start: 20090919
  10. DORALIN (OTILONIUM) [Concomitant]
     Indication: COLITIS
     Dosage: 40MGX3 DAILY
     Dates: start: 20090919

REACTIONS (1)
  - COLITIS ISCHAEMIC [None]
